FAERS Safety Report 4583929-3 (Version None)
Quarter: 2005Q1

REPORT INFORMATION
  Report Type: 
  Country: None (occurrence: None)
  Receive Date: 20050216
  Receipt Date: 20041217
  Transmission Date: 20050727
  Serious: No
  Sender: FDA-Public Use
  Company Number: US-GLAXOSMITHKLINE-A0537781A

PATIENT
  Age: 73 Year
  Sex: Male

DRUGS (3)
  1. AVODART [Suspect]
     Indication: BENIGN PROSTATIC HYPERPLASIA
     Dosage: .5MG PER DAY
     Route: 048
     Dates: start: 20030813, end: 20040701
  2. ATIVAN [Concomitant]
  3. HYTRIN [Concomitant]

REACTIONS (4)
  - BREAST MASS [None]
  - BREAST PAIN [None]
  - GYNAECOMASTIA [None]
  - MICTURITION URGENCY [None]
